FAERS Safety Report 8733598 (Version 2)
Quarter: 2012Q4

REPORT INFORMATION
  Report Type: 
  Country: PL (occurrence: PL)
  Receive Date: 20120821
  Receipt Date: 20120917
  Transmission Date: 20130627
  Serious: Yes (Life-Threatening, Other)
  Sender: FDA-Public Use
  Company Number: PL-PFIZER INC-2012200323

PATIENT
  Age: 16 Year
  Sex: Male
  Weight: 65 kg

DRUGS (14)
  1. VFEND [Suspect]
     Indication: PULMONARY MYCOSIS
     Dosage: 200 mg, 2x/day
     Route: 048
     Dates: start: 20120802, end: 20120815
  2. AMIKIN [Concomitant]
     Dosage: 1.0 UNK, 1x/day
     Route: 042
     Dates: start: 20120719, end: 20120802
  3. TIENAM [Concomitant]
     Dosage: 1.0 UNK, 2x/day
     Route: 042
     Dates: start: 20120730, end: 20120806
  4. BISEPTOL [Concomitant]
     Dosage: 0.96 UNK, 2x/day
     Route: 042
     Dates: start: 20120803, end: 20120814
  5. SULPERAZON [Concomitant]
     Dosage: 2.0 UNK, 2x/day
     Route: 042
     Dates: start: 20120806, end: 20120816
  6. VANCOMYCIN [Concomitant]
     Dosage: 0.5 UNK, 4x/day
     Route: 042
     Dates: start: 20120808, end: 20120820
  7. BIOXETIN [Concomitant]
     Dosage: 0.02 UNK, 1x/day
     Route: 048
     Dates: start: 20120710, end: 20120812
  8. ZANTAC [Concomitant]
     Dosage: 0.05 UNK, 2x/day
     Route: 042
     Dates: start: 20120703
  9. BIOPRAZOL [Concomitant]
     Dosage: 0.02 UNK, 1x/day
     Route: 048
     Dates: start: 20120708, end: 20120815
  10. TERTENSIF SR [Concomitant]
     Dosage: UNK
  11. AMLOZEK [Concomitant]
  12. NYSTATIN [Concomitant]
  13. CALPEROS [Concomitant]
  14. ASMAG F [Concomitant]

REACTIONS (7)
  - Hemiparesis [Recovering/Resolving]
  - Pupils unequal [Recovering/Resolving]
  - Disorientation [Recovered/Resolved]
  - Memory impairment [Recovered/Resolved]
  - Somnolence [Recovered/Resolved]
  - Altered state of consciousness [Unknown]
  - Dizziness [Unknown]
